FAERS Safety Report 19935154 (Version 1)
Quarter: 2021Q4

REPORT INFORMATION
  Report Type: Spontaneous
  Country: US (occurrence: US)
  Receive Date: 20211008
  Receipt Date: 20211008
  Transmission Date: 20220303
  Serious: No
  Sender: FDA-Public Use
  Company Number: US-SANOFI-00791194

PATIENT
  Sex: Female

DRUGS (2)
  1. DUPIXENT [Suspect]
     Active Substance: DUPILUMAB
     Dosage: UNK
     Dates: start: 2021
  2. PRALUENT [Concomitant]
     Active Substance: ALIROCUMAB
     Dosage: UNK, QOW

REACTIONS (1)
  - Injection site swelling [Unknown]

NARRATIVE: CASE EVENT DATE: 20210101
